FAERS Safety Report 13919260 (Version 1)
Quarter: 2017Q3

REPORT INFORMATION
  Report Type: Spontaneous
  Country: US (occurrence: None)
  Receive Date: 20170829
  Receipt Date: 20170829
  Transmission Date: 20171127
  Serious: Yes (Death, Hospitalization)
  Sender: FDA-Public Use
  Company Number: None

PATIENT
  Age: 80 Year
  Sex: Male

DRUGS (1)
  1. APIXABAN [Suspect]
     Active Substance: APIXABAN
     Indication: ANTICOAGULANT THERAPY
     Route: 048
     Dates: start: 20170706

REACTIONS (5)
  - Malnutrition [None]
  - Disease progression [None]
  - Dysphagia [None]
  - Blood pressure diastolic decreased [None]
  - Syncope [None]

NARRATIVE: CASE EVENT DATE: 20170728
